FAERS Safety Report 4737386-4 (Version None)
Quarter: 2005Q3

REPORT INFORMATION
  Report Type: 
  Country: None (occurrence: None)
  Receive Date: 20050804
  Receipt Date: 20050721
  Transmission Date: 20060218
  Serious: Yes (Death)
  Sender: FDA-Public Use
  Company Number: 2005S1003724

PATIENT
  Age: 60 Year
  Sex: Female

DRUGS (10)
  1. CLOZAPINE [Suspect]
     Indication: SCHIZOPHRENIA, PARANOID TYPE
     Dosage: 25 MG; QAM; PO
     Route: 048
     Dates: start: 20030701, end: 20050312
  2. CLOZAPINE [Suspect]
     Indication: SCHIZOPHRENIA, PARANOID TYPE
     Dosage: 300 MG;HS; PO
     Route: 048
     Dates: start: 20030701, end: 20050312
  3. CLONAZEPAM [Concomitant]
  4. SYMBAX [Concomitant]
  5. BUSPIRONE [Concomitant]
  6. TRIFLUOPERAZONE [Concomitant]
  7. HYDROCHLORIDE [Concomitant]
  8. BENZATROPINE MESILATE [Concomitant]
  9. LISINOPRIL [Concomitant]
  10. CITALOPRAM [Concomitant]

REACTIONS (4)
  - ANOXIC ENCEPHALOPATHY [None]
  - CARDIAC ARREST [None]
  - FALL [None]
  - URINARY TRACT INFECTION [None]
